FAERS Safety Report 21953099 (Version 1)
Quarter: 2023Q1

REPORT INFORMATION
  Report Type: Spontaneous
  Country: IN (occurrence: IN)
  Receive Date: 20230204
  Receipt Date: 20230204
  Transmission Date: 20230417
  Serious: Yes (Other)
  Sender: FDA-Public Use
  Company Number: IN-002147023-NVSC2023IN021130

PATIENT

DRUGS (1)
  1. BROLUCIZUMAB [Suspect]
     Active Substance: BROLUCIZUMAB
     Indication: Polypoidal choroidal vasculopathy
     Dosage: UNK (MONTHLY/QUARTERLY, SINGLE DOSE GIVEN))
     Route: 031

REACTIONS (2)
  - Vascular rupture [Not Recovered/Not Resolved]
  - Retinal haemorrhage [Not Recovered/Not Resolved]
